FAERS Safety Report 10537523 (Version 1)
Quarter: 2014Q4

REPORT INFORMATION
  Report Type: Spontaneous
  Country: US (occurrence: None)
  Receive Date: 20141022
  Receipt Date: 20141022
  Transmission Date: 20150529
  Serious: Yes (Hospitalization)
  Sender: FDA-Public Use
  Company Number: None

PATIENT
  Age: 76 Year
  Sex: Female

DRUGS (1)
  1. FORTEO [Suspect]
     Active Substance: TERIPARATIDE
     Dosage: 20 MCG DAILY SUB Q
     Route: 058
     Dates: start: 20140319, end: 20141010

REACTIONS (3)
  - Rash generalised [None]
  - Gastrointestinal infection [None]
  - Gastrointestinal hypomotility [None]

NARRATIVE: CASE EVENT DATE: 20141018
